FAERS Safety Report 21871914 (Version 13)
Quarter: 2024Q3

REPORT INFORMATION
  Report Type: Spontaneous
  Country: US (occurrence: US)
  Receive Date: 20230117
  Receipt Date: 20240916
  Transmission Date: 20241016
  Serious: No
  Sender: PFIZER
  Company Number: US-PFIZER INC-PV202300006744

PATIENT
  Age: 80 Year
  Sex: Female
  Weight: 46.712 kg

DRUGS (3)
  1. IBRANCE [Suspect]
     Active Substance: PALBOCICLIB
     Indication: Breast cancer metastatic
     Dosage: DAILY FOR 21 DAYS FOLLOWED BY A WEEK OFF
     Route: 048
  2. IBRANCE [Suspect]
     Active Substance: PALBOCICLIB
     Dosage: DAILY FOR 21 DAYS THEN 7 DAYS OFF
  3. LETROZOLE [Concomitant]
     Active Substance: LETROZOLE
     Indication: Breast cancer metastatic
     Dosage: 2.5 MG, 1X/DAY

REACTIONS (12)
  - Dysgeusia [Unknown]
  - Weight decreased [Not Recovered/Not Resolved]
  - Feeding disorder [Not Recovered/Not Resolved]
  - Neoplasm progression [Not Recovered/Not Resolved]
  - Alopecia [Unknown]
  - Nasopharyngitis [Unknown]
  - Influenza [Unknown]
  - Haemoglobin abnormal [Unknown]
  - Fatigue [Unknown]
  - Lethargy [Unknown]
  - Feeling abnormal [Unknown]
  - Asthenia [Unknown]
